FAERS Safety Report 4284525-8 (Version None)
Quarter: 2004Q1

REPORT INFORMATION
  Report Type: 
  Country: None (occurrence: None)
  Receive Date: 20040130
  Receipt Date: 20040109
  Transmission Date: 20041129
  Serious: Yes (Other)
  Sender: FDA-Public Use
  Company Number: DSA_23911_2004

PATIENT
  Age: 54 Year
  Sex: Male

DRUGS (3)
  1. DILTIAZEM [Suspect]
     Indication: HYPERTENSION
     Dosage: 60 MG Q DAY PO
     Route: 048
     Dates: start: 20030910, end: 20031021
  2. ATENOLOL [Concomitant]
  3. LOSEC I.V. [Concomitant]

REACTIONS (3)
  - DEPRESSION [None]
  - KERATOCONJUNCTIVITIS SICCA [None]
  - SLEEP DISORDER [None]
